FAERS Safety Report 13738850 (Version 3)
Quarter: 2018Q2

REPORT INFORMATION
  Report Type: Spontaneous
  Country: JP (occurrence: JP)
  Receive Date: 20170710
  Receipt Date: 20180531
  Transmission Date: 20180711
  Serious: Yes (Hospitalization, Other)
  Sender: FDA-Public Use
  Company Number: JP-SA-2017SA122451

PATIENT
  Age: 54 Year
  Sex: Female
  Weight: 38 kg

DRUGS (6)
  1. TAXOTERE [Suspect]
     Active Substance: DOCETAXEL
     Indication: ADJUVANT THERAPY
     Dosage: 60 MG, QCY
     Route: 042
     Dates: start: 20160215, end: 20160215
  2. TAXOTERE [Suspect]
     Active Substance: DOCETAXEL
     Indication: OESOPHAGEAL SQUAMOUS CELL CARCINOMA STAGE II
     Dosage: UNK UNK, 1X
     Route: 065
     Dates: start: 201603
  3. 5-FU [FLUOROURACIL] [Suspect]
     Active Substance: FLUOROURACIL
     Indication: OESOPHAGEAL SQUAMOUS CELL CARCINOMA STAGE II
     Route: 065
     Dates: start: 201603
  4. CISPLATIN. [Suspect]
     Active Substance: CISPLATIN
     Indication: OESOPHAGEAL SQUAMOUS CELL CARCINOMA STAGE II
     Route: 065
     Dates: start: 201603
  5. 5-FU [FLUOROURACIL] [Suspect]
     Active Substance: FLUOROURACIL
     Indication: ADJUVANT THERAPY
     Route: 065
     Dates: start: 20160215, end: 20160219
  6. CISPLATIN. [Suspect]
     Active Substance: CISPLATIN
     Indication: ADJUVANT THERAPY
     Route: 065
     Dates: start: 20160215, end: 20160219

REACTIONS (7)
  - Acute focal bacterial nephritis [Recovered/Resolved]
  - Abdominal mass [Unknown]
  - Escherichia infection [Recovered/Resolved]
  - Pyrexia [Unknown]
  - Tenderness [Unknown]
  - Neutrophil count decreased [Unknown]
  - Neutrophilia [Recovering/Resolving]

NARRATIVE: CASE EVENT DATE: 201603
